FAERS Safety Report 8518045 (Version 2)
Quarter: 2012Q4

REPORT INFORMATION
  Report Type: 
  Country: US (occurrence: US)
  Receive Date: 20120417
  Receipt Date: 20121102
  Transmission Date: 20130627
  Serious: No
  Sender: FDA-Public Use
  Company Number: US-ASTRAZENECA-2011SE72601

PATIENT
  Age: 42 Year
  Sex: Male

DRUGS (6)
  1. NEXIUM [Suspect]
     Route: 048
  2. PRILOSEC [Suspect]
     Route: 048
  3. TUMS [Concomitant]
  4. ACID CONTROL COMPLETE [Concomitant]
  5. RANITIDINE [Concomitant]
  6. PREVACID [Concomitant]

REACTIONS (5)
  - Dyspepsia [Unknown]
  - Vomiting [Unknown]
  - Prescription form tampering [Unknown]
  - Inappropriate schedule of drug administration [Unknown]
  - Drug ineffective [Unknown]
